FAERS Safety Report 7553308 (Version 2)
Quarter: 2015Q1

REPORT INFORMATION
  Report Type: Report from Study
  Country: GB (occurrence: GB)
  Receive Date: 20100825
  Receipt Date: 20150223
  Transmission Date: 20150721
  Serious: Yes (Death, Other)
  Sender: FDA-Public Use
  Company Number: GB-ROCHE-722007

PATIENT
  Age: 69 Year
  Sex: Male

DRUGS (4)
  1. EPIRUBICIN [Suspect]
     Active Substance: EPIRUBICIN
     Indication: ADENOCARCINOMA GASTRIC
     Dosage: LAST DOSE ON 02/NOV/2009
     Route: 042
     Dates: start: 20090911
  2. CAPECITABINE. [Suspect]
     Active Substance: CAPECITABINE
     Indication: ADENOCARCINOMA GASTRIC
     Dosage: DOSE: 35000.LAST DOSE PRIOR TO SAE: 02 NOVEMBER 2009.
     Route: 048
  3. BEVACIZUMAB [Suspect]
     Active Substance: BEVACIZUMAB
     Indication: ADENOCARCINOMA GASTRIC
     Dosage: LAST DOSE PRIOR TO SAE: 11 JUNE 2010
     Route: 042
  4. CISPLATIN. [Suspect]
     Active Substance: CISPLATIN
     Indication: ADENOCARCINOMA GASTRIC
     Dosage: LAST DOSE ON 02/NOV/2009
     Route: 042
     Dates: start: 20090911

REACTIONS (2)
  - Abdominal pain [Recovered/Resolved]
  - Abdominal pain [Fatal]

NARRATIVE: CASE EVENT DATE: 20100316
